FAERS Safety Report 19481246 (Version 1)
Quarter: 2021Q3

REPORT INFORMATION
  Report Type: Report from Study
  Country: JP (occurrence: JP)
  Receive Date: 20210701
  Receipt Date: 20210701
  Transmission Date: 20211014
  Serious: Yes (Death, Hospitalization, Other)
  Sender: FDA-Public Use
  Company Number: JP-BAUSCH-BL-2021-021731

PATIENT
  Age: 80 Year
  Sex: Male

DRUGS (3)
  1. DEMSER [Suspect]
     Active Substance: METYROSINE
     Indication: BLOOD CATECHOLAMINES INCREASED
     Dosage: EVERYDAY
     Route: 048
     Dates: start: 20210319, end: 2021
  2. DEMSER [Suspect]
     Active Substance: METYROSINE
     Dosage: EVERYDAY
     Route: 048
     Dates: start: 2021
  3. DEMSER [Suspect]
     Active Substance: METYROSINE
     Dosage: EVERYDAY
     Route: 048
     Dates: start: 2021, end: 2021

REACTIONS (12)
  - Pancytopenia [Unknown]
  - Renal haemorrhage [Unknown]
  - Emphysematous cystitis [Unknown]
  - C-reactive protein increased [Unknown]
  - Hypoglycaemia [Unknown]
  - Atrial fibrillation [Unknown]
  - Blood pressure decreased [Unknown]
  - Malignant neoplasm progression [Fatal]
  - Oxygen saturation decreased [Unknown]
  - Somnolence [Unknown]
  - Infection [Unknown]
  - Depressive symptom [Unknown]

NARRATIVE: CASE EVENT DATE: 2021
